FAERS Safety Report 6729314 (Version 1)
Quarter: 2020Q3

REPORT INFORMATION
  Report Type: Spontaneous
  Country: GB (occurrence: GB)
  Receive Date: 20080818
  Receipt Date: 20080818
  Transmission Date: 20201105
  Serious: Yes (Disabling)
  Sender: FDA-Public Use
  Company Number: GB-ROCHE-579173

PATIENT
  Sex: Male
  Weight: 65 kg

DRUGS (4)
  1. IBANDRONIC ACID. [Suspect]
     Active Substance: IBANDRONIC ACID
     Indication: PRODUCT USED FOR UNKNOWN INDICATION
     Route: 048
     Dates: start: 200610, end: 200705
  2. MEGACE [Concomitant]
     Active Substance: MEGESTROL ACETATE
  3. ZOMETA [Suspect]
     Active Substance: ZOLEDRONIC ACID
     Indication: METASTASES TO BONE
     Route: 042
     Dates: start: 200507, end: 200608
  4. INTERFERON NOS [Concomitant]
     Active Substance: INTERFERON
     Dates: start: 200507, end: 200609

REACTIONS (1)
  - Osteonecrosis [Unknown]

NARRATIVE: CASE EVENT DATE: 20070501
